FAERS Safety Report 8519636-1 (Version None)
Quarter: 2012Q3

REPORT INFORMATION
  Report Type: 
  Country: None (occurrence: None)
  Receive Date: 20120718
  Receipt Date: 20120712
  Transmission Date: 20120928
  Serious: Yes (Hospitalization)
  Sender: FDA-Public Use
  Company Number: US-009507513-1207USA003807

PATIENT

DRUGS (3)
  1. RIBASPHERE [Suspect]
  2. VICTRELIS [Suspect]
     Indication: HEPATITIS C
     Dosage: 800 MG, TID
     Route: 048
     Dates: start: 20120516, end: 20120627
  3. PEGASYS [Suspect]

REACTIONS (2)
  - ASCITES [None]
  - HEPATIC CIRRHOSIS [None]
